FAERS Safety Report 7864851-3 (Version None)
Quarter: 2011Q4

REPORT INFORMATION
  Report Type: 
  Country: None (occurrence: None)
  Receive Date: 20111028
  Receipt Date: 20100903
  Transmission Date: 20120403
  Serious: No
  Sender: FDA-Public Use
  Company Number: US-GLAXOSMITHKLINE-A0879569A

PATIENT
  Sex: Male

DRUGS (5)
  1. ADVAIR DISKUS 100/50 [Suspect]
     Indication: CHRONIC OBSTRUCTIVE PULMONARY DISEASE
     Dosage: 1PUFF AS REQUIRED
     Route: 055
  2. TPN [Concomitant]
  3. ANTI-CHOLESTEROL MEDICATION [Concomitant]
  4. MOBIC [Concomitant]
  5. BLOOD PRESSURE MEDICATION [Concomitant]

REACTIONS (2)
  - BRONCHITIS [None]
  - TREATMENT NONCOMPLIANCE [None]
